FAERS Safety Report 18926877 (Version 2)
Quarter: 2021Q4

REPORT INFORMATION
  Report Type: Spontaneous
  Country: US (occurrence: None)
  Receive Date: 20210223
  Receipt Date: 20211123
  Transmission Date: 20220303
  Serious: Yes (Other)
  Sender: FDA-Public Use
  Company Number: 2019SE09947

PATIENT
  Age: 27712 Day
  Sex: Female
  Weight: 70.3 kg

DRUGS (24)
  1. NEXIUM [Suspect]
     Active Substance: ESOMEPRAZOLE MAGNESIUM
     Indication: Gastrooesophageal reflux disease
     Route: 048
     Dates: start: 2007, end: 2021
  2. PRILOSEC [Suspect]
     Active Substance: OMEPRAZOLE MAGNESIUM
     Indication: Gastrooesophageal reflux disease
     Route: 048
     Dates: start: 2007, end: 2021
  3. PRILOSEC [Suspect]
     Active Substance: OMEPRAZOLE MAGNESIUM
     Indication: Gastrooesophageal reflux disease
     Route: 048
     Dates: start: 2007
  4. DEXILANT [Suspect]
     Active Substance: DEXLANSOPRAZOLE
     Indication: Gastrooesophageal reflux disease
     Route: 065
     Dates: start: 2009
  5. PROTONIX [Suspect]
     Active Substance: PANTOPRAZOLE SODIUM
     Indication: Gastrooesophageal reflux disease
     Route: 065
     Dates: start: 2007, end: 2021
  6. PROTONIX [Suspect]
     Active Substance: PANTOPRAZOLE SODIUM
     Indication: Gastrooesophageal reflux disease
     Route: 065
     Dates: end: 2019
  7. FUROSEMIDE [Concomitant]
     Active Substance: FUROSEMIDE
  8. PRAVASTATIN [Concomitant]
     Active Substance: PRAVASTATIN
  9. ALLOPURINOL [Concomitant]
     Active Substance: ALLOPURINOL
  10. PLAVIX [Concomitant]
     Active Substance: CLOPIDOGREL BISULFATE
  11. TRAMADOL [Concomitant]
     Active Substance: TRAMADOL
  12. AZITHROMYCIN [Concomitant]
     Active Substance: AZITHROMYCIN
  13. CIPROFLOXACIN [Concomitant]
     Active Substance: CIPROFLOXACIN
  14. MINOCYCLINE [Concomitant]
     Active Substance: MINOCYCLINE HYDROCHLORIDE
  15. AMOXICILLIN [Concomitant]
     Active Substance: AMOXICILLIN
  16. AMITRIPTYLINE [Concomitant]
     Active Substance: AMITRIPTYLINE
  17. HYDRALAZINE [Concomitant]
     Active Substance: HYDRALAZINE HYDROCHLORIDE
  18. VOLTAREN [Concomitant]
     Active Substance: DICLOFENAC SODIUM
  19. SIMVASTATIN [Concomitant]
     Active Substance: SIMVASTATIN
  20. TYLENOL [Concomitant]
     Active Substance: ACETAMINOPHEN
  21. FAMOTIDINE [Concomitant]
     Active Substance: FAMOTIDINE
  22. RANITIDINE [Concomitant]
     Active Substance: RANITIDINE
  23. NITROSTAT [Concomitant]
     Active Substance: NITROGLYCERIN
  24. ZOFRAN [Concomitant]
     Active Substance: ONDANSETRON HYDROCHLORIDE

REACTIONS (4)
  - Chronic kidney disease [Not Recovered/Not Resolved]
  - Acute kidney injury [Not Recovered/Not Resolved]
  - Gastrooesophageal reflux disease [Not Recovered/Not Resolved]
  - Renal failure [Unknown]

NARRATIVE: CASE EVENT DATE: 20080528
